FAERS Safety Report 16736765 (Version 4)
Quarter: 2019Q4

REPORT INFORMATION
  Report Type: Spontaneous
  Country: US (occurrence: US)
  Receive Date: 20190823
  Receipt Date: 20191016
  Transmission Date: 20200122
  Serious: Yes (Life-Threatening, Hospitalization, Other)
  Sender: FDA-Public Use
  Company Number: US-ALLERGAN-1933971US

PATIENT
  Sex: Male
  Weight: 57 kg

DRUGS (6)
  1. BOTOX [Suspect]
     Active Substance: ONABOTULINUMTOXINA
     Indication: MUSCLE SPASTICITY
     Dosage: SINGLE
     Route: 030
     Dates: start: 20190814, end: 20190814
  2. RISPERDAL [Concomitant]
     Active Substance: RISPERIDONE
     Indication: AUTISM SPECTRUM DISORDER
     Dosage: 2 MG, BID
     Route: 048
     Dates: start: 201802
  3. ADDERALL [Concomitant]
     Active Substance: AMPHETAMINE ASPARTATE\AMPHETAMINE SULFATE\DEXTROAMPHETAMINE SACCHARATE\DEXTROAMPHETAMINE SULFATE
     Indication: ATTENTION DEFICIT/HYPERACTIVITY DISORDER
     Dosage: 20MG AM AND 5MG AT NOON
     Route: 048
     Dates: start: 201802
  4. BOTOX [Suspect]
     Active Substance: ONABOTULINUMTOXINA
     Dosage: UNK UNK, SINGLE
     Route: 030
     Dates: start: 20190814, end: 20190814
  5. RISPERDAL [Concomitant]
     Active Substance: RISPERIDONE
     Indication: PSYCHOTIC DISORDER
  6. BOTOX [Suspect]
     Active Substance: ONABOTULINUMTOXINA
     Dosage: UNK UNK, SINGLE
     Route: 030
     Dates: start: 20190814, end: 20190814

REACTIONS (14)
  - Blood pressure increased [Recovered/Resolved]
  - Tachypnoea [Recovered/Resolved]
  - Respiratory failure [Recovered/Resolved]
  - Areflexia [Recovered/Resolved]
  - Confusional state [Unknown]
  - Secretion discharge [Recovered/Resolved]
  - Botulism [Recovering/Resolving]
  - Hypokinesia [Recovered/Resolved]
  - Protrusion tongue [Recovered/Resolved]
  - Cranial nerve disorder [Unknown]
  - Heart rate increased [Recovered/Resolved]
  - Gait disturbance [Recovered/Resolved]
  - Muscular weakness [Recovered/Resolved]
  - Dysarthria [Recovered/Resolved]

NARRATIVE: CASE EVENT DATE: 20190814
